FAERS Safety Report 17070590 (Version 1)
Quarter: 2019Q4

REPORT INFORMATION
  Report Type: Spontaneous
  Country: JP (occurrence: JP)
  Receive Date: 20191125
  Receipt Date: 20191125
  Transmission Date: 20200122
  Serious: Yes (Hospitalization, Other)
  Sender: FDA-Public Use
  Company Number: JP-PFIZER INC-2019499284

PATIENT
  Age: 7 Decade
  Sex: Male

DRUGS (1)
  1. ZITHROMAC 250MG [Suspect]
     Active Substance: AZITHROMYCIN DIHYDRATE
     Indication: TOOTH ABSCESS
     Dosage: UNK
     Route: 048

REACTIONS (1)
  - Alcohol poisoning [Unknown]
